FAERS Safety Report 17472637 (Version 1)
Quarter: 2020Q1

REPORT INFORMATION
  Report Type: Spontaneous
  Country: DE (occurrence: DE)
  Receive Date: 20200228
  Receipt Date: 20200228
  Transmission Date: 20200409
  Serious: Yes (Hospitalization, Other)
  Sender: FDA-Public Use
  Company Number: DE-JNJFOC-20200227488

PATIENT
  Sex: Male
  Weight: 94 kg

DRUGS (25)
  1. COSENTYX [Suspect]
     Active Substance: SECUKINUMAB
     Dosage: 150 MG, UNK (ONCE), DRUG START PERIOD 47 (DAYS)
     Route: 065
     Dates: start: 20170512, end: 20170512
  2. COSENTYX [Suspect]
     Active Substance: SECUKINUMAB
     Dosage: 150 MG, PER APPLICATION,  DRUG START PERIOD 47 (DAYS)
     Route: 065
     Dates: start: 20180315, end: 20180315
  3. RAMIPRIL. [Concomitant]
     Active Substance: RAMIPRIL
     Indication: PRODUCT USED FOR UNKNOWN INDICATION
     Dosage: 5 MG, BID (1-0-1)
     Route: 065
  4. ATORVASTATIN [Concomitant]
     Active Substance: ATORVASTATIN
     Indication: PRODUCT USED FOR UNKNOWN INDICATION
     Dosage: 20 MG, UNK (0-0-0-1)
     Route: 065
     Dates: start: 201707
  5. COSENTYX [Suspect]
     Active Substance: SECUKINUMAB
     Dosage: 150 MG, PER APPLICATION,DRUG START PERIOD 47 (DAYS)
     Route: 065
     Dates: start: 20170526, end: 20170526
  6. COSENTYX [Suspect]
     Active Substance: SECUKINUMAB
     Dosage: 150 MG, PER APPLICATION, DRUG START PERIOD 47 (DAYS)
     Route: 065
     Dates: start: 20171015, end: 20171015
  7. COSENTYX [Suspect]
     Active Substance: SECUKINUMAB
     Dosage: 150 MG, PER APPLICATION, DRUG START PERIOD 47 (DAYS)
     Route: 065
     Dates: start: 20180215, end: 20180215
  8. COSENTYX [Suspect]
     Active Substance: SECUKINUMAB
     Dosage: 150 MG, PER APPLICATION, DRUG START PERIOD 47 (DAYS)
     Route: 065
     Dates: start: 20171115, end: 20171115
  9. VALSARTAN. [Concomitant]
     Active Substance: VALSARTAN
     Indication: PRODUCT USED FOR UNKNOWN INDICATION
     Dosage: 80 MG, UNK (1-0-0-0)
     Route: 065
     Dates: start: 201707
  10. IBUPROFEN. [Suspect]
     Active Substance: IBUPROFEN
     Indication: PSORIATIC ARTHROPATHY
     Dosage: 800 OT, TID,  DRUG START PERIOD 737 (DAYS)
     Route: 048
     Dates: start: 20150520
  11. METHOTREXATE. [Suspect]
     Active Substance: METHOTREXATE
     Indication: PSORIATIC ARTHROPATHY
     Dosage: 15 MG, QW,  DRUG START PERIOD 163 (DAYS)
     Route: 048
     Dates: start: 20161215
  12. COSENTYX [Suspect]
     Active Substance: SECUKINUMAB
     Dosage: 150 MG, PER APPLICATION, DRUG START PERIOD 47 (DAYS)
     Route: 065
     Dates: start: 20170609, end: 20170609
  13. COSENTYX [Suspect]
     Active Substance: SECUKINUMAB
     Indication: ANKYLOSING SPONDYLITIS
     Dosage: 150 MG, PER APPLICATION, DRUG START PERIOD 47 (DAYS)
     Route: 065
     Dates: start: 20170710, end: 20170710
  14. COSENTYX [Suspect]
     Active Substance: SECUKINUMAB
     Dosage: 150 MG, PER APPLICATION, DRUG START PERIOD 47 (DAYS)
     Route: 065
     Dates: start: 20180115, end: 20180115
  15. COSENTYX [Suspect]
     Active Substance: SECUKINUMAB
     Dosage: 150 MG, PER APPLICATION,  DRUG START PERIOD 47 (DAYS)
     Route: 065
     Dates: start: 20170519, end: 20170519
  16. AMOXICILLIN. [Concomitant]
     Active Substance: AMOXICILLIN
     Indication: PROPHYLAXIS
     Route: 065
  17. RUBIEFOL [Concomitant]
     Indication: PSORIATIC ARTHROPATHY
     Dosage: 5 MG, QW
     Route: 048
     Dates: start: 20161215
  18. PANTOPRAZOLE [Concomitant]
     Active Substance: PANTOPRAZOLE
     Indication: PRODUCT USED FOR UNKNOWN INDICATION
     Dosage: 40 MG, UNK (0-0-0-1)
     Route: 065
     Dates: start: 201707
  19. DAIVOBET [Concomitant]
     Active Substance: BETAMETHASONE DIPROPIONATE\CALCIPOTRIENE
     Indication: PSORIASIS
     Dosage: 1 DF, QD
     Route: 061
  20. COSENTYX [Suspect]
     Active Substance: SECUKINUMAB
     Indication: PRODUCT USED FOR UNKNOWN INDICATION
     Dosage: 150 MG, PER APPLICATION, DRUG START PERIOD 47 (DAYS)
     Route: 065
     Dates: start: 20171215, end: 20171215
  21. COSENTYX [Suspect]
     Active Substance: SECUKINUMAB
     Dosage: 150 MG, PER APPLICATION, DRUG START PERIOD 47 (DAYS)
     Route: 065
     Dates: start: 20170915, end: 20170915
  22. METAMIZOLE [Concomitant]
     Active Substance: METAMIZOLE
     Indication: PRODUCT USED FOR UNKNOWN INDICATION
     Dosage: 30 OT, PRN (MAX 4 PER DAY)
     Route: 065
     Dates: start: 201707
  23. COSENTYX [Suspect]
     Active Substance: SECUKINUMAB
     Dosage: 150 MG, PER APPLICATION, DRUG START PERIOD 47 (DAYS)
     Route: 065
     Dates: start: 20170602, end: 20170602
  24. COSENTYX [Suspect]
     Active Substance: SECUKINUMAB
     Dosage: 150 MG, PER APPLICATION,  DRUG START PERIOD 47 (DAYS)
     Route: 065
     Dates: start: 20170813, end: 20170813
  25. ASPIRIN. [Concomitant]
     Active Substance: ASPIRIN
     Indication: PRODUCT USED FOR UNKNOWN INDICATION
     Dosage: 100 MG, UNK (1-0-0-0)
     Route: 065
     Dates: start: 201707

REACTIONS (29)
  - Acute hepatic failure [Unknown]
  - Blood pressure systolic decreased [Unknown]
  - Hepatitis E [Recovered/Resolved]
  - Liver injury [Unknown]
  - Cold sweat [Recovering/Resolving]
  - Cardiovascular disorder [Recovering/Resolving]
  - Dyspnoea [Unknown]
  - Hyperhidrosis [Unknown]
  - Acute kidney injury [Unknown]
  - Angioedema [Unknown]
  - Infection [Unknown]
  - C-reactive protein increased [Unknown]
  - Palpitations [Unknown]
  - Chromaturia [Unknown]
  - General physical health deterioration [Recovering/Resolving]
  - Glomerular filtration rate decreased [Unknown]
  - Feeling cold [Unknown]
  - Nausea [Unknown]
  - Dizziness [Unknown]
  - Drug-induced liver injury [Unknown]
  - Coordination abnormal [Unknown]
  - Ocular icterus [Unknown]
  - Jaundice [Unknown]
  - Dysphagia [Recovering/Resolving]
  - Hyperbilirubinaemia [Unknown]
  - Urticaria [Unknown]
  - Transaminases increased [Unknown]
  - Diarrhoea [Unknown]
  - Faeces soft [Unknown]

NARRATIVE: CASE EVENT DATE: 20170525
